FAERS Safety Report 4467913-6 (Version None)
Quarter: 2004Q4

REPORT INFORMATION
  Report Type: 
  Country: None (occurrence: None)
  Receive Date: 20041004
  Receipt Date: 20040924
  Transmission Date: 20050328
  Serious: Yes (Other)
  Sender: FDA-Public Use
  Company Number: 200409170

PATIENT
  Sex: Male

DRUGS (1)
  1. STREPTASE (STREPTOKINASE) (ZLB BEHRING) [Suspect]
     Indication: MYOCARDIAL INFARCTION

REACTIONS (1)
  - CONVULSION [None]
